FAERS Safety Report 7900297-7 (Version None)
Quarter: 2011Q4

REPORT INFORMATION
  Report Type: 
  Country: None (occurrence: None)
  Receive Date: 20111104
  Receipt Date: 20111021
  Transmission Date: 20120403
  Serious: Yes (Hospitalization)
  Sender: FDA-Public Use
  Company Number: 1000023006

PATIENT
  Age: 78 Year
  Sex: Female

DRUGS (10)
  1. LESCOL [Concomitant]
  2. VALACYCLOVIR HYDROCHLORIDE [Suspect]
     Indication: GENITAL HERPES
     Dosage: 500 MG (500 MG, 1 IN 1 D), ORAL, 500 MG (500 MG, 1 IN 1 D), ORAL
     Route: 048
     Dates: end: 20110721
  3. SANMIGRAN (PIZOTIFEN MALEATE) TABLETS) [Suspect]
     Indication: HEADACHE
     Dosage: 1 MG (0.5 MG, 2 IN 1 D), ORAL
     Route: 048
     Dates: end: 20110721
  4. SERESTA (OXAZEPAM) (OXAZEPAM) [Concomitant]
  5. ACTONEL (RISEDRONATE SODIUM) (RISEDRONATE SODIUM) [Concomitant]
  6. ESCITALOPRAM [Suspect]
     Indication: DEPRESSION
     Dosage: 15 MG (15 MG, 1 IN 1 D), ORAL
     Route: 048
     Dates: end: 20110721
  7. IMOVANE (ZOPICLONE) (ZOPICLONE) [Concomitant]
  8. ZOLMITRIPTAN [Suspect]
     Indication: HEADACHE
     Dosage: (2.5 MG, ON REQUEST), ORAL
     Route: 048
     Dates: end: 20110721
  9. TRANSILANE (PLANTAGO OVATA) (PLANTAGO OVATA) [Concomitant]
  10. CARDENSIEL (BISOPROLOL FUMARATE) (BISOPROLOL FUMARATE) [Concomitant]

REACTIONS (15)
  - INFECTION [None]
  - AMNESIA [None]
  - FLATULENCE [None]
  - CONVULSIVE THRESHOLD LOWERED [None]
  - HEADACHE [None]
  - C-REACTIVE PROTEIN INCREASED [None]
  - BLOOD PH DECREASED [None]
  - PARTIAL SEIZURES [None]
  - PYREXIA [None]
  - PCO2 INCREASED [None]
  - LOSS OF CONSCIOUSNESS [None]
  - DYSPNOEA [None]
  - BLOOD LACTIC ACID INCREASED [None]
  - CLONUS [None]
  - DRUG ABUSE [None]
